FAERS Safety Report 8905737 (Version 1)
Quarter: 2012Q4

REPORT INFORMATION
  Report Type: 
  Country: VE (occurrence: VE)
  Receive Date: 20121111
  Receipt Date: 20121111
  Transmission Date: 20130627
  Serious: Yes (Hospitalization)
  Sender: FDA-Public Use
  Company Number: PHHY2012VE103040

PATIENT
  Sex: Female

DRUGS (4)
  1. ACLASTA [Suspect]
     Indication: OSTEOPOROSIS
     Dosage: 5 mg, yearly
     Route: 042
     Dates: start: 20120313
  2. EUTHYROX [Concomitant]
     Indication: HYPOTHYROIDISM
     Dosage: 150 ug, QD
     Dates: start: 1997
  3. CALCIUM [Concomitant]
     Indication: OSTEOPOROSIS
     Dosage: UNK UKN, BID
     Route: 048
  4. LEXOTANIL [Concomitant]
     Indication: SLEEP DISORDER
     Dosage: 3 mg, UNK
     Route: 048

REACTIONS (4)
  - Bone disorder [Recovering/Resolving]
  - Rotator cuff syndrome [Recovering/Resolving]
  - Ligament disorder [Recovering/Resolving]
  - Dizziness postural [Not Recovered/Not Resolved]
